FAERS Safety Report 7433302-5 (Version None)
Quarter: 2011Q2

REPORT INFORMATION
  Report Type: 
  Country: None (occurrence: None)
  Receive Date: 20110422
  Receipt Date: 20110418
  Transmission Date: 20111010
  Serious: Yes (Life-Threatening, Hospitalization, Other)
  Sender: FDA-Public Use
  Company Number: US-ELI_LILLY_AND_COMPANY-US201011001642

PATIENT
  Sex: Male

DRUGS (18)
  1. LISINOPRIL AND HYDROCHLOROTHIAZIDE [Concomitant]
     Dosage: UNK, UNKNOWN
     Route: 065
  2. VANTIN [Concomitant]
     Dosage: UNK
     Dates: start: 20110104, end: 20110110
  3. SYSTANE [Concomitant]
     Dosage: UNK, UNKNOWN
     Route: 065
     Dates: start: 20100823
  4. ZEBETA [Concomitant]
  5. ASPIRIN [Concomitant]
     Dosage: UNK, UNKNOWN
     Route: 065
  6. EFFIENT [Suspect]
     Dosage: UNK, UNKNOWN
     Route: 065
     Dates: start: 20101014
  7. IMDUR [Concomitant]
     Dosage: UNK, UNKNOWN
     Route: 065
  8. ADVAIR HFA [Concomitant]
     Dosage: UNK, UNKNOWN
     Route: 065
  9. PLACEBO [Concomitant]
  10. GLUCOPHAGE [Concomitant]
     Dosage: UNK, UNKNOWN
     Route: 065
  11. NEURONTIN [Concomitant]
     Dosage: UNK, UNKNOWN
     Route: 065
  12. AZITHROMYCIN [Concomitant]
     Dosage: UNK
     Dates: start: 20101220
  13. ATENOLOL [Concomitant]
     Dosage: UNK, UNKNOWN
     Route: 065
  14. VENTOLIN [Concomitant]
     Dosage: UNK
     Dates: start: 20110103
  15. ACTOS [Concomitant]
     Dosage: UNK, UNKNOWN
     Route: 065
  16. AVODART [Concomitant]
     Dosage: UNK, UNKNOWN
     Route: 065
     Dates: start: 20100608
  17. CRESTOR [Concomitant]
     Dosage: UNK, UNKNOWN
     Route: 065
  18. MOTRIN [Concomitant]
     Dosage: UNK, UNKNOWN
     Route: 065
     Dates: start: 20100507

REACTIONS (3)
  - LOSS OF CONSCIOUSNESS [None]
  - ANGINA UNSTABLE [None]
  - LUNG CANCER METASTATIC [None]
